FAERS Safety Report 20201053 (Version 1)
Quarter: 2021Q4

REPORT INFORMATION
  Report Type: Spontaneous
  Country: NL (occurrence: NL)
  Receive Date: 20211217
  Receipt Date: 20211217
  Transmission Date: 20220304
  Serious: Yes (Life-Threatening, Hospitalization, Other)
  Sender: FDA-Public Use
  Company Number: None

PATIENT
  Age: 81 Year
  Sex: Female
  Weight: 55 kg

DRUGS (12)
  1. NAPROXEN [Interacting]
     Active Substance: NAPROXEN
     Indication: Pain
     Dosage: 500 MILLIGRAM, 12 H (2 X PER DAG 1 STUK)
     Dates: start: 20211018, end: 20211023
  2. PHENPROCOUMON [Interacting]
     Active Substance: PHENPROCOUMON
     Indication: Peripheral arterial occlusive disease
     Dosage: 3 MILLIGRAM, QD, (1 X DAG 1 STUK, MARCOUMAR TABLET)
     Dates: start: 20171212, end: 20211023
  3. DENOSUMAB [Concomitant]
     Active Substance: DENOSUMAB
     Dosage: UNK, (INJECTIEVLOEISTOF, 60 MG/ML (MILLIGRAM PER MILLILITER))
  4. METHOTREXATE (METHOTREXATE SODIUM) [Concomitant]
     Active Substance: METHOTREXATE SODIUM
     Dosage: UNK, (TABLET, 2,5 MG (MILLIGRAM))
  5. FUROSEMIDE [Concomitant]
     Active Substance: FUROSEMIDE
     Dosage: UNK, (TABLET, 20 MG (MILLIGRAM))
  6. SOTALOL [Concomitant]
     Active Substance: SOTALOL
     Dosage: UNK, (TABLET, 80 MG (MILLIGRAM))
  7. NIFEDIPINE [Concomitant]
     Active Substance: NIFEDIPINE
     Dosage: UNK, (TABLET, TABLET RETARD, 10 MG (MILLIGRAM))
  8. FOLIC ACID [Concomitant]
     Active Substance: FOLIC ACID
     Dosage: UNK, (TABLET, 5 MG (MILLIGRAM))
  9. METOPROLOL [Concomitant]
     Active Substance: METOPROLOL
     Dosage: UNK, (TABLET MET GEREGULEERDE AFGIFTE, 200 MG (MILLIGRAM))
  10. CLINDAMYCIN [Concomitant]
     Active Substance: CLINDAMYCIN
     Dosage: UNK, (CAPSULE, 300 MG (MILLIGRAM))
  11. CALCIUMCARBONAT [Concomitant]
     Dosage: UNK, (TABLET 1,25 MG/800IE)
  12. METAMIZOL [Concomitant]
     Active Substance: METAMIZOLE SODIUM
     Dosage: UNK, (INJECTIEVLOEISTOF, 500 MG/ML (MILLIGRAM PER MILLILITER))

REACTIONS (5)
  - Hypovolaemic shock [Recovering/Resolving]
  - Gastric ulcer [Unknown]
  - Melaena [Unknown]
  - Haemoglobin decreased [Unknown]
  - Drug interaction [Unknown]

NARRATIVE: CASE EVENT DATE: 20211023
